FAERS Safety Report 18317964 (Version 1)
Quarter: 2020Q3

REPORT INFORMATION
  Report Type: Spontaneous
  Country: GB (occurrence: GB)
  Receive Date: 20200928
  Receipt Date: 20200928
  Transmission Date: 20201103
  Serious: Yes (Hospitalization, Other)
  Sender: FDA-Public Use
  Company Number: GB-VIIV HEALTHCARE LIMITED-GB2020188465

PATIENT
  Age: 47 Year
  Sex: Male
  Weight: 74 kg

DRUGS (13)
  1. OFLOXACIN. [Suspect]
     Active Substance: OFLOXACIN
     Indication: ACQUIRED IMMUNODEFICIENCY SYNDROME
     Dosage: 800 MG
     Route: 048
     Dates: start: 19970529, end: 19970602
  2. SEPTRIN FORTE [Suspect]
     Active Substance: SULFAMETHOXAZOLE\TRIMETHOPRIM
     Indication: ACQUIRED IMMUNODEFICIENCY SYNDROME
     Dosage: 480 MG
     Route: 065
     Dates: end: 19970603
  3. LAMIVUDINE. [Suspect]
     Active Substance: LAMIVUDINE
     Indication: ACQUIRED IMMUNODEFICIENCY SYNDROME
     Dosage: 300 MG
     Route: 065
     Dates: start: 19970304, end: 19970603
  4. STREPTOMYCIN [Suspect]
     Active Substance: STREPTOMYCIN SULFATE
     Indication: TUBERCULOSIS
     Dosage: UNK
     Route: 030
     Dates: start: 19970530, end: 19970602
  5. ZERIT [Suspect]
     Active Substance: STAVUDINE
     Dosage: 80 MG
     Route: 065
     Dates: start: 19970606
  6. INVIRASE [Suspect]
     Active Substance: SAQUINAVIR MESYLATE
     Dosage: 1800 MG
     Route: 065
     Dates: start: 19970606
  7. PROTHIONAMIDE [Suspect]
     Active Substance: PROTIONAMIDE
     Indication: PRODUCT USED FOR UNKNOWN INDICATION
     Dosage: 250 MG
     Route: 048
     Dates: start: 19970529, end: 19970530
  8. INVIRASE [Suspect]
     Active Substance: SAQUINAVIR MESYLATE
     Indication: ACQUIRED IMMUNODEFICIENCY SYNDROME
     Dosage: 1800 MG
     Route: 065
     Dates: start: 19970304, end: 19970603
  9. LAMIVUDINE. [Suspect]
     Active Substance: LAMIVUDINE
     Dosage: 300 MG
     Route: 065
     Dates: start: 19970605
  10. ZERIT [Suspect]
     Active Substance: STAVUDINE
     Indication: ACQUIRED IMMUNODEFICIENCY SYNDROME
     Dosage: 80 MG
     Route: 065
     Dates: start: 19970304, end: 19970603
  11. ETHAMBUTOL [Suspect]
     Active Substance: ETHAMBUTOL HYDROCHLORIDE
     Indication: TUBERCULOSIS
     Dosage: 0.8 G
     Route: 048
     Dates: start: 19970530, end: 19970603
  12. SEPTRIN FORTE [Suspect]
     Active Substance: SULFAMETHOXAZOLE\TRIMETHOPRIM
     Dosage: 480 MG
     Route: 065
     Dates: start: 19970605
  13. CLARITHROMYCIN. [Suspect]
     Active Substance: CLARITHROMYCIN
     Indication: TUBERCULOSIS
     Dosage: 1000 MG
     Route: 048
     Dates: start: 19970529

REACTIONS (6)
  - Pyrexia [Unknown]
  - Cough [Unknown]
  - Purpura [Recovering/Resolving]
  - Renal failure [Recovered/Resolved]
  - Hepatosplenomegaly [Unknown]
  - Malaise [Unknown]

NARRATIVE: CASE EVENT DATE: 19970502
